FAERS Safety Report 15698078 (Version 1)
Quarter: 2018Q4

REPORT INFORMATION
  Report Type: Spontaneous
  Country: FR (occurrence: FR)
  Receive Date: 20181207
  Receipt Date: 20181207
  Transmission Date: 20190205
  Serious: Yes (Hospitalization)
  Sender: FDA-Public Use
  Company Number: FR-SUN PHARMACEUTICAL INDUSTRIES LTD-2018RR-192982

PATIENT
  Age: 79 Year
  Sex: Female

DRUGS (3)
  1. LAMALINE (CAFFEINE\PARACETAMOL\ATROPA BELLADONNA EXTRACT\PAPAVER SOMNIFERUM TINCTURE) [Suspect]
     Active Substance: ACETAMINOPHEN\BELLADONNA LEAF\CAFFEINE\OPIUM
     Indication: PAIN
     Dosage: 1800 MILLIGRAM, DAILY
     Route: 048
     Dates: start: 2015, end: 201611
  2. PARACETAMOL [Suspect]
     Active Substance: ACETAMINOPHEN
     Indication: PAIN
     Dosage: 3 GRAM, DAILY
     Route: 048
     Dates: start: 2015
  3. TOPALGIC L.P. 100 MG, COMPRIME A LIBERATION PROLONGEE [Suspect]
     Active Substance: TRAMADOL HYDROCHLORIDE
     Indication: PAIN
     Dosage: 2 DOSAGE FORM, DAILY
     Route: 048
     Dates: start: 2015, end: 201611

REACTIONS (1)
  - Drug use disorder [Recovered/Resolved]

NARRATIVE: CASE EVENT DATE: 2015
